FAERS Safety Report 15631994 (Version 1)
Quarter: 2018Q4

REPORT INFORMATION
  Report Type: Spontaneous
  Country: US (occurrence: US)
  Receive Date: 20181118
  Receipt Date: 20181118
  Transmission Date: 20190205
  Serious: Yes (Life-Threatening, Disabling, Other)
  Sender: FDA-Public Use
  Company Number: None

PATIENT
  Age: 42 Year
  Sex: Male
  Weight: 103.5 kg

DRUGS (3)
  1. SENSODYNE COMPLETE PROTECTION EXTRA FRESH [Suspect]
     Active Substance: STANNOUS FLUORIDE
     Indication: DENTAL CARE
     Dosage: ?          QUANTITY:3.4 OUNCE(S);?
     Route: 048
     Dates: start: 20181116, end: 20181117
  2. SENSODYNE COMPLETE PROTECTION EXTRA FRESH [Suspect]
     Active Substance: STANNOUS FLUORIDE
     Indication: DENTAL DISORDER PROPHYLAXIS
     Dosage: ?          QUANTITY:3.4 OUNCE(S);?
     Route: 048
     Dates: start: 20181116, end: 20181117
  3. CLONAZEPAM. [Concomitant]
     Active Substance: CLONAZEPAM

REACTIONS (15)
  - Mydriasis [None]
  - Agitation [None]
  - Tachycardia [None]
  - Anger [None]
  - Dry mouth [None]
  - Skin irritation [None]
  - Hair disorder [None]
  - Frustration tolerance decreased [None]
  - Thirst [None]
  - Blister [None]
  - Lip pain [None]
  - Discomfort [None]
  - Dehydration [None]
  - Insomnia [None]
  - Erythema [None]

NARRATIVE: CASE EVENT DATE: 20181116
